FAERS Safety Report 5521222-2 (Version None)
Quarter: 2007Q4

REPORT INFORMATION
  Report Type: 
  Country: None (occurrence: None)
  Receive Date: 20071119
  Receipt Date: 20071113
  Transmission Date: 20080405
  Serious: Yes (Life-Threatening, Hospitalization, Other)
  Sender: FDA-Public Use
  Company Number: CZ-ASTRAZENECA-2007SE05938

PATIENT
  Age: 6454 Day
  Sex: Female
  Weight: 55 kg

DRUGS (5)
  1. QUETIAPINE FUMARATE [Suspect]
     Indication: DEPRESSION
     Route: 048
     Dates: start: 20070721, end: 20071104
  2. ESCITALOPRAM [Suspect]
     Indication: DEPRESSION
     Dates: start: 20070721, end: 20071015
  3. ESCITALOPRAM [Suspect]
     Dates: start: 20071105, end: 20071105
  4. EPIMIL [Suspect]
     Indication: AFFECTIVE DISORDER
     Route: 048
     Dates: start: 20071001, end: 20071105
  5. RIVOTRIL [Suspect]
     Indication: ANXIETY
     Route: 048
     Dates: start: 20071001, end: 20071105

REACTIONS (2)
  - INTENTIONAL OVERDOSE [None]
  - SUICIDE ATTEMPT [None]
